FAERS Safety Report 16842055 (Version 1)
Quarter: 2019Q3

REPORT INFORMATION
  Report Type: Spontaneous
  Country: US (occurrence: US)
  Receive Date: 20190923
  Receipt Date: 20190923
  Transmission Date: 20191005
  Serious: No
  Sender: FDA-Public Use
  Company Number: US-AMGEN INC.-USASP2019153513

PATIENT

DRUGS (1)
  1. AIMOVIG [Suspect]
     Active Substance: ERENUMAB-AOOE
     Indication: MIGRAINE
     Dosage: 70 MILLIGRAM
     Route: 065

REACTIONS (16)
  - Pain in extremity [Unknown]
  - Insomnia [Unknown]
  - Dyspnoea [Unknown]
  - Vomiting [Unknown]
  - Chills [Unknown]
  - Muscle spasms [Unknown]
  - Injection site swelling [Unknown]
  - Abdominal pain [Recovered/Resolved]
  - Mobility decreased [Unknown]
  - Diarrhoea [Unknown]
  - Skin discolouration [Unknown]
  - Peripheral coldness [Unknown]
  - Back pain [Unknown]
  - Drug ineffective [Unknown]
  - Migraine [Unknown]
  - Injection site pain [Recovered/Resolved]

NARRATIVE: CASE EVENT DATE: 2019
